FAERS Safety Report 10046070 (Version 1)
Quarter: 2014Q1

REPORT INFORMATION
  Report Type: Report from Study
  Country: MX (occurrence: MX)
  Receive Date: 20140331
  Receipt Date: 20140331
  Transmission Date: 20141002
  Serious: Yes (Hospitalization, Other)
  Sender: FDA-Public Use
  Company Number: MX-ORION CORPORATION ORION PHARMA-ENTC2014-0104

PATIENT
  Age: 63 Year
  Sex: Female

DRUGS (1)
  1. STALEVO [Suspect]
     Indication: PARKINSON^S DISEASE
     Dosage: STRENGTH: 150/37.5/200 MG
     Route: 048

REACTIONS (10)
  - Wrong technique in drug usage process [Unknown]
  - Oral pain [Not Recovered/Not Resolved]
  - Cough [Not Recovered/Not Resolved]
  - Oral discomfort [Not Recovered/Not Resolved]
  - Foreign body [Not Recovered/Not Resolved]
  - Neoplasm malignant [Not Recovered/Not Resolved]
  - Pain [Not Recovered/Not Resolved]
  - Musculoskeletal stiffness [Not Recovered/Not Resolved]
  - Drug dose omission [Unknown]
  - Parkinson^s disease [Not Recovered/Not Resolved]
